FAERS Safety Report 16113563 (Version 2)
Quarter: 2021Q2

REPORT INFORMATION
  Report Type: Spontaneous
  Country: US (occurrence: US)
  Receive Date: 20190325
  Receipt Date: 20210413
  Transmission Date: 20210716
  Serious: No
  Sender: FDA-Public Use
  Company Number: US-ALLERGAN-1841602US

PATIENT
  Sex: Female

DRUGS (1)
  1. LATISSE [Suspect]
     Active Substance: BIMATOPROST
     Indication: HYPOTRICHOSIS
     Dosage: UNK
     Route: 061
     Dates: start: 2017

REACTIONS (5)
  - Growth of eyelashes [Unknown]
  - Wrong technique in product usage process [Unknown]
  - Eyelid vellus hair changes [Unknown]
  - Erythema of eyelid [Unknown]
  - Blepharal pigmentation [Unknown]
